FAERS Safety Report 7046858-1 (Version None)
Quarter: 2010Q3

REPORT INFORMATION
  Report Type: 
  Country: None (occurrence: None)
  Receive Date: 20100902
  Receipt Date: 20090422
  Transmission Date: 20110219
  Serious: Yes (Other)
  Sender: FDA-Public Use
  Company Number: 09-003

PATIENT
  Age: 35 Year
  Sex: Male

DRUGS (1)
  1. MIX OF DIFFERENT ALLERGENIC EXTRACTS [Suspect]
     Indication: HYPERSENSITIVITY
     Dosage: SKIN TEST
     Dates: start: 20090401

REACTIONS (2)
  - PRURITUS [None]
  - URTICARIA [None]
